FAERS Safety Report 23328508 (Version 1)
Quarter: 2023Q4

REPORT INFORMATION
  Report Type: Spontaneous
  Country: US (occurrence: US)
  Receive Date: 20231221
  Receipt Date: 20231221
  Transmission Date: 20240110
  Serious: Yes (Hospitalization, Other)
  Sender: FDA-Public Use
  Company Number: US-MLMSERVICE-20231208-4107782-1

PATIENT
  Age: 15 Year
  Sex: Male

DRUGS (10)
  1. FLUOXETINE HYDROCHLORIDE [Interacting]
     Active Substance: FLUOXETINE HYDROCHLORIDE
     Indication: Schizophrenia
     Dosage: 60 MG, 40 MG IN THE MORNING, 20 MG IN THE EVENING
     Route: 065
  2. FLUOXETINE HYDROCHLORIDE [Interacting]
     Active Substance: FLUOXETINE HYDROCHLORIDE
     Dosage: 40 MG, DAILY, DAY 5
     Route: 065
  3. FLUOXETINE HYDROCHLORIDE [Interacting]
     Active Substance: FLUOXETINE HYDROCHLORIDE
     Dosage: 60 NG, OTHER, 40 MG IN THE MORNING, 20 MG IN THE EVENING
     Route: 065
  4. CLOZAPINE [Interacting]
     Active Substance: CLOZAPINE
     Indication: Schizophrenia
     Dosage: 200 MG IN THE MORNING, 100 MG IN THE AFTERNOON, 250 MG IN THE EVENING
     Route: 065
  5. CLOZAPINE [Interacting]
     Active Substance: CLOZAPINE
     Dosage: 200 MG, DAILY
     Route: 065
  6. CLOZAPINE [Interacting]
     Active Substance: CLOZAPINE
     Dosage: 300 MG, OTHER 100 MG IN THE MORNING, 200 MG IN
  7. CLOZAPINE [Interacting]
     Active Substance: CLOZAPINE
     Dosage: 150 MG, OTHER 100 MG IN THE MORNING, 50 MG IN EVENING,
     Route: 065
  8. CLOZAPINE [Interacting]
     Active Substance: CLOZAPINE
     Dosage: 50 MG, BID, DAY 5
  9. ZIPRASIDONE [Interacting]
     Active Substance: ZIPRASIDONE
     Indication: Schizophrenia
     Dosage: 20 MG, BID
     Route: 065
  10. ZIPRASIDONE [Interacting]
     Active Substance: ZIPRASIDONE
     Dosage: 40 MG, BID
     Route: 065

REACTIONS (5)
  - Product prescribing error [Recovered/Resolved]
  - Malignant catatonia [Recovered/Resolved]
  - Antipsychotic drug level increased [Recovered/Resolved]
  - Delirium [Recovered/Resolved]
  - Drug interaction [Recovered/Resolved]
